FAERS Safety Report 9803138 (Version 1)
Quarter: 2014Q1

REPORT INFORMATION
  Report Type: Report from Study
  Country: MX (occurrence: MX)
  Receive Date: 20140108
  Receipt Date: 20140108
  Transmission Date: 20141002
  Serious: Yes (Death)
  Sender: FDA-Public Use
  Company Number: PHHY2013MX154423

PATIENT
  Age: 60 Year
  Sex: Female

DRUGS (2)
  1. ONBREZ [Suspect]
     Indication: PULMONARY FIBROSIS
     Dosage: 1 DF, QD
     Route: 055
  2. ONBREZ [Suspect]
     Indication: OFF LABEL USE

REACTIONS (1)
  - Myocardial infarction [Fatal]
